FAERS Safety Report 19463776 (Version 2)
Quarter: 2021Q2

REPORT INFORMATION
  Report Type: Spontaneous
  Country: JP (occurrence: JP)
  Receive Date: 20210625
  Receipt Date: 20210630
  Transmission Date: 20210717
  Serious: Yes (Other)
  Sender: FDA-Public Use
  Company Number: JP-VALIDUS PHARMACEUTICALS LLC-JP-2021VAL001275

PATIENT

DRUGS (4)
  1. SAMSCA [Concomitant]
     Active Substance: TOLVAPTAN
     Indication: PRODUCT USED FOR UNKNOWN INDICATION
     Dosage: UNK
     Dates: start: 20210519, end: 20210607
  2. LASIX [Suspect]
     Active Substance: FUROSEMIDE
     Indication: NEPHROTIC SYNDROME
     Dosage: 20 MG, QD
     Route: 048
     Dates: start: 20210519, end: 20210524
  3. SPIRONOLACTONE. [Concomitant]
     Active Substance: SPIRONOLACTONE
     Indication: PRODUCT USED FOR UNKNOWN INDICATION
     Dosage: UNK
     Dates: start: 20210518
  4. LASIX [Suspect]
     Active Substance: FUROSEMIDE
     Dosage: 10 MG, QD
     Route: 048
     Dates: start: 20210525, end: 20210526

REACTIONS (2)
  - Renal impairment [Unknown]
  - Sudden hearing loss [Recovered/Resolved]

NARRATIVE: CASE EVENT DATE: 20210524
